FAERS Safety Report 4474248-4 (Version None)
Quarter: 2004Q4

REPORT INFORMATION
  Report Type: 
  Country: None (occurrence: None)
  Receive Date: 20041008
  Receipt Date: 20040928
  Transmission Date: 20050328
  Serious: Yes (Hospitalization)
  Sender: FDA-Public Use
  Company Number: 204976

PATIENT
  Age: 65 Year
  Sex: Female

DRUGS (10)
  1. HERCEPTIN [Suspect]
     Indication: BREAST CANCER
     Dosage: 4 MG/KG, SINGLE, INTRAVENOUS; SEE IMAGE
     Route: 042
  2. DOCETAXEL (DOCETAXEL) [Suspect]
     Indication: BREAST CANCER
     Dosage: 185 MG, Q3W, INTRAVENOUS
     Route: 042
  3. CYCLOPHOSPHAMIDE [Suspect]
     Dates: start: 20031020
  4. DECADRON [Concomitant]
  5. ZOFRAN [Concomitant]
  6. NEUPOGEN [Concomitant]
  7. PROCHLORPERAZINE [Concomitant]
  8. PANTOLOC (PANTOPRAZOLE) [Concomitant]
  9. VIOXX [Concomitant]
  10. TYLENOL #3 (UNITED STATES) (ACETAMINOPHEN, CODEINE PHOSPHATE) [Concomitant]

REACTIONS (6)
  - DIARRHOEA [None]
  - NAUSEA [None]
  - PYREXIA [None]
  - SEPSIS [None]
  - VOMITING [None]
  - WHITE BLOOD CELL COUNT INCREASED [None]
